FAERS Safety Report 5374803-3 (Version None)
Quarter: 2007Q2

REPORT INFORMATION
  Report Type: 
  Country: None (occurrence: None)
  Receive Date: 20070629
  Receipt Date: 20070628
  Transmission Date: 20071010
  Serious: Yes (Hospitalization)
  Sender: FDA-Public Use
  Company Number: A0653098A

PATIENT
  Age: 59 Year
  Sex: Male

DRUGS (9)
  1. AVANDIA [Suspect]
     Route: 048
     Dates: start: 20070512, end: 20070518
  2. METOPROLOL SUCCINATE [Concomitant]
  3. RAMIPRIL [Concomitant]
     Dosage: 10MG TWICE PER DAY
  4. METFORMIN HCL [Concomitant]
     Dosage: 1G TWICE PER DAY
  5. GLYBURIDE [Concomitant]
  6. GLARGINE [Concomitant]
  7. WARFARIN SODIUM [Concomitant]
  8. LASIX [Concomitant]
     Dosage: 20MG PER DAY
  9. INSULIN [Concomitant]

REACTIONS (13)
  - CARDIAC FAILURE CONGESTIVE [None]
  - CHEST DISCOMFORT [None]
  - DYSPNOEA [None]
  - DYSPNOEA EXERTIONAL [None]
  - GALLOP RHYTHM PRESENT [None]
  - HEPATIC ENZYME INCREASED [None]
  - HEPATITIS ACUTE [None]
  - JUGULAR VEIN DISTENSION [None]
  - LIVER FUNCTION TEST ABNORMAL [None]
  - MYOCARDIAL ISCHAEMIA [None]
  - OEDEMA PERIPHERAL [None]
  - ORTHOPNOEA [None]
  - PYREXIA [None]
